FAERS Safety Report 5074455-6 (Version None)
Quarter: 2006Q3

REPORT INFORMATION
  Report Type: 
  Country: None (occurrence: None)
  Receive Date: 20060808
  Receipt Date: 20060802
  Transmission Date: 20061208
  Serious: Yes (Death)
  Sender: FDA-Public Use
  Company Number: SE-BOEHRINGER INGELHEIM PHARMACEUTICALS, INC.-2006-DE-04065GD

PATIENT

DRUGS (3)
  1. ACETAMINOPHEN [Suspect]
  2. NEVIRAPINE [Suspect]
  3. TRIMETHOPRIM + SULFAMETHOXAZOLE [Suspect]

REACTIONS (3)
  - DRUG INTERACTION [None]
  - INJURY [None]
  - LIVER DISORDER [None]
